FAERS Safety Report 17514945 (Version 1)
Quarter: 2020Q1

REPORT INFORMATION
  Report Type: Other
  Country: GB (occurrence: GB)
  Receive Date: 20200309
  Receipt Date: 20200309
  Transmission Date: 20200409
  Serious: Yes (Hospitalization, Other)
  Sender: FDA-Public Use
  Company Number: GB-LUPIN PHARMACEUTICALS INC.-2020-01235

PATIENT
  Age: 68 Year
  Sex: Male
  Weight: 81 kg

DRUGS (2)
  1. METOCLOPRAMIDE. [Concomitant]
     Active Substance: METOCLOPRAMIDE
     Indication: NAUSEA
     Dosage: 10 MILLIGRAM (UP TO 3 TIMES A DAY) AS NECESSARY
     Route: 065
     Dates: start: 20200117
  2. SIMVASTATIN TABLETS [Suspect]
     Active Substance: SIMVASTATIN
     Indication: TYPE V HYPERLIPIDAEMIA
     Dosage: 40 MILLIGRAM, QD (AT NIGHT)
     Route: 065
     Dates: start: 20200107

REACTIONS (4)
  - Jaundice [Recovering/Resolving]
  - Myalgia [Unknown]
  - Decreased appetite [Unknown]
  - Rhabdomyolysis [Unknown]

NARRATIVE: CASE EVENT DATE: 20200214
